FAERS Safety Report 4410612-7 (Version None)
Quarter: 2004Q3

REPORT INFORMATION
  Report Type: 
  Country: None (occurrence: None)
  Receive Date: 20040728
  Receipt Date: 20040728
  Transmission Date: 20050211
  Serious: Yes (Other)
  Sender: FDA-Public Use
  Company Number: None

PATIENT
  Sex: Female
  Weight: 97.5234 kg

DRUGS (1)
  1. TRAZODONE 50 MG  Q H S PRN [Suspect]
     Indication: INSOMNIA
     Dosage: 50 MG, QHS, PO
     Route: 048
     Dates: start: 20040712, end: 20040717

REACTIONS (3)
  - CONSTIPATION [None]
  - DIZZINESS [None]
  - SEDATION [None]
